FAERS Safety Report 9124499 (Version 1)
Quarter: 2013Q1

REPORT INFORMATION
  Report Type: Report from Study
  Country: AU (occurrence: AU)
  Receive Date: 20130116
  Receipt Date: 20130116
  Transmission Date: 20140127
  Serious: Yes (Hospitalization, Other)
  Sender: FDA-Public Use
  Company Number: AU-JNJFOC-20121210280

PATIENT
  Sex: Female

DRUGS (1)
  1. REMICADE [Suspect]
     Indication: ANKYLOSING SPONDYLITIS
     Route: 042

REACTIONS (5)
  - Ectopic pregnancy [Unknown]
  - Postpartum depression [Unknown]
  - Exposure during pregnancy [Unknown]
  - Alopecia [Unknown]
  - Increased tendency to bruise [Unknown]
